FAERS Safety Report 5277741-X (Version None)
Quarter: 2007Q1

REPORT INFORMATION
  Report Type: 
  Country: None (occurrence: None)
  Receive Date: 20070321
  Receipt Date: 20070305
  Transmission Date: 20070707
  Serious: Yes (Hospitalization)
  Sender: FDA-Public Use
  Company Number: 2007000416

PATIENT
  Age: 62 Year
  Sex: 0
  Weight: 117.4816 kg

DRUGS (6)
  1. ERLOTINIB (TABLET) [Suspect]
     Indication: COLORECTAL CANCER
     Dosage: 150 MG (QD), ORAL
     Route: 048
     Dates: start: 20070129
  2. TOPOTECAN (TOPOTECAN) [Suspect]
     Indication: COLORECTAL CANCER
     Dosage: 2.75 MG, INTRAVENOUS
     Route: 042
     Dates: start: 20070129
  3. ARANESP [Concomitant]
  4. LOMOTIL [Concomitant]
  5. ZOMETA [Concomitant]
  6. CIPRO [Concomitant]

REACTIONS (5)
  - ANAEMIA [None]
  - BACTERIAL INFECTION [None]
  - BLOOD CULTURE POSITIVE [None]
  - FEBRILE NEUTROPENIA [None]
  - WHITE BLOOD CELL COUNT DECREASED [None]
